FAERS Safety Report 17823915 (Version 1)
Quarter: 2020Q2

REPORT INFORMATION
  Report Type: Spontaneous
  Country: CN (occurrence: CN)
  Receive Date: 20200526
  Receipt Date: 20200526
  Transmission Date: 20200714
  Serious: Yes (Hospitalization, Other)
  Sender: FDA-Public Use
  Company Number: CN-ACCORD-182482

PATIENT
  Age: 56 Year
  Sex: Male

DRUGS (4)
  1. TIGECYCLINE. [Suspect]
     Active Substance: TIGECYCLINE
     Indication: ANTIBIOTIC THERAPY
     Route: 041
  2. CALAMINE [Concomitant]
     Active Substance: CALAMINE\FERRIC OXIDE RED\ZINC OXIDE
     Indication: RASH
  3. LORATADINE. [Concomitant]
     Active Substance: LORATADINE
     Indication: RASH
  4. PREDNISONE. [Concomitant]
     Active Substance: PREDNISONE
     Indication: RASH
     Dosage: CONTINUED TO TAKE ORAL DOSE OF 20 MG/DAY

REACTIONS (1)
  - Toxic epidermal necrolysis [Unknown]
